FAERS Safety Report 9266203 (Version 11)
Quarter: 2019Q3

REPORT INFORMATION
  Report Type: Report from Study
  Country: BR (occurrence: BR)
  Receive Date: 20130502
  Receipt Date: 20190709
  Transmission Date: 20191005
  Serious: Yes (Hospitalization, Other)
  Sender: FDA-Public Use
  Company Number: BR-ROCHE-1219730

PATIENT
  Sex: Male
  Weight: 76 kg

DRUGS (9)
  1. NATRILIX [INDAPAMIDE] [Concomitant]
     Indication: HYPERTENSION
     Route: 065
  2. GABAPENTIN. [Concomitant]
     Active Substance: GABAPENTIN
     Indication: RHEUMATOID ARTHRITIS
     Route: 065
  3. ACTEMRA [Suspect]
     Active Substance: TOCILIZUMAB
     Indication: RHEUMATOID ARTHRITIS
     Dosage: MOST RECENT DOSE ON 13/MAR/2013?LATEST INFUSION 01/NOV/2018.?MOST RECENT ADMINISTRATION ON 01/APR/20
     Route: 042
     Dates: start: 20110511
  4. ENALAPRIL MALEATE. [Concomitant]
     Active Substance: ENALAPRIL MALEATE
     Indication: HYPERTENSION
     Route: 065
  5. SELOZOK [Concomitant]
     Active Substance: METOPROLOL SUCCINATE
     Indication: HYPERTENSION
     Route: 065
  6. ACTEMRA [Suspect]
     Active Substance: TOCILIZUMAB
     Route: 042
     Dates: start: 20190528
  7. ACETYLSALICYLIC ACID [Concomitant]
     Active Substance: ASPIRIN
     Indication: ANTICOAGULANT THERAPY
     Route: 065
  8. ACTEMRA [Suspect]
     Active Substance: TOCILIZUMAB
     Route: 042
     Dates: start: 20190627
  9. ENALAPRIL [Concomitant]
     Active Substance: ENALAPRIL
     Route: 065

REACTIONS (17)
  - Cholelithiasis [Not Recovered/Not Resolved]
  - Depression [Unknown]
  - Pulmonary fibrosis [Unknown]
  - Rheumatoid arthritis [Not Recovered/Not Resolved]
  - Dermatitis [Unknown]
  - Erythema [Recovered/Resolved]
  - Lung infection [Recovered/Resolved]
  - Neoplasm [Not Recovered/Not Resolved]
  - Pain [Not Recovered/Not Resolved]
  - Lung disorder [Unknown]
  - Influenza [Recovering/Resolving]
  - Osteoarthritis [Recovering/Resolving]
  - Arthropathy [Not Recovered/Not Resolved]
  - Erysipelas [Recovered/Resolved]
  - Hypersensitivity [Unknown]
  - Hypersensitivity [Recovered/Resolved]
  - Oedema peripheral [Recovered/Resolved]
